FAERS Safety Report 9502251 (Version 4)
Quarter: 2013Q4

REPORT INFORMATION
  Report Type: Spontaneous
  Country: FR (occurrence: FR)
  Receive Date: 20130906
  Receipt Date: 20131220
  Transmission Date: 20140711
  Serious: Yes (Hospitalization)
  Sender: FDA-Public Use
  Company Number: FR-BIOGENIDEC-2013BI083769

PATIENT
  Age: 51 Year
  Sex: Female

DRUGS (5)
  1. TYSABRI [Suspect]
     Indication: MULTIPLE SCLEROSIS
     Route: 042
     Dates: start: 20130327
  2. SOLUMEDROL [Concomitant]
     Route: 042
     Dates: start: 20110831
  3. DOLIPRANE [Concomitant]
     Dates: start: 20130528
  4. RIVOTRYL [Concomitant]
     Route: 048
     Dates: start: 20130528
  5. NEURONTIN [Concomitant]

REACTIONS (2)
  - Intraductal proliferative breast lesion [Not Recovered/Not Resolved]
  - Drug specific antibody present [Unknown]
